FAERS Safety Report 4547893-5 (Version None)
Quarter: 2005Q1

REPORT INFORMATION
  Report Type: 
  Country: None (occurrence: None)
  Receive Date: 20050110
  Receipt Date: 20041229
  Transmission Date: 20050727
  Serious: Yes (Hospitalization)
  Sender: FDA-Public Use
  Company Number: US-JNJFOC-20041103697

PATIENT
  Sex: Female
  Weight: 60.33 kg

DRUGS (13)
  1. REMICADE [Suspect]
     Route: 042
  2. REMICADE [Suspect]
     Route: 042
  3. METHOTREXATE [Concomitant]
     Route: 058
  4. ASACOL [Concomitant]
     Dosage: FOR 8 YEARS
     Route: 049
  5. FLAGYL [Concomitant]
     Dosage: FOR 2 YEARS
     Route: 049
  6. FOSAMAX [Concomitant]
     Indication: OSTEOPOROSIS
  7. PAXIL [Concomitant]
     Indication: DEPRESSION
  8. SINGULAIR [Concomitant]
  9. LIBRAX [Concomitant]
  10. LIBRAX [Concomitant]
  11. LOMOTIL [Concomitant]
  12. LOMOTIL [Concomitant]
  13. ASTELIN [Concomitant]
     Dosage: AS NEEDED

REACTIONS (1)
  - LISTERIOSIS [None]
